FAERS Safety Report 10476594 (Version 1)
Quarter: 2014Q3

REPORT INFORMATION
  Report Type: Spontaneous
  Country: ES (occurrence: ES)
  Receive Date: 20140925
  Receipt Date: 20140925
  Transmission Date: 20150326
  Serious: Yes (Hospitalization)
  Sender: FDA-Public Use
  Company Number: ES-SA-2014SA129847

PATIENT
  Age: 68 Year

DRUGS (1)
  1. IRBESARTAN. [Suspect]
     Active Substance: IRBESARTAN
     Indication: HYPERTENSION
     Route: 065

REACTIONS (6)
  - Nervous system disorder [Unknown]
  - Abdominal pain [Unknown]
  - Angioedema [Unknown]
  - Anaphylactic reaction [Unknown]
  - Urticaria [Unknown]
  - Nausea [Unknown]
